FAERS Safety Report 6672476-0 (Version None)
Quarter: 2010Q2

REPORT INFORMATION
  Report Type: 
  Country: None (occurrence: None)
  Receive Date: 20100408
  Receipt Date: 20100405
  Transmission Date: 20101027
  Serious: Yes (Life-Threatening, Hospitalization)
  Sender: FDA-Public Use
  Company Number: US-ELI_LILLY_AND_COMPANY-US201003003943

PATIENT
  Sex: Male
  Weight: 76.8 kg

DRUGS (8)
  1. PEMETREXED [Suspect]
     Indication: LUNG NEOPLASM MALIGNANT
     Dosage: 500 MG/M2, OTHER
     Route: 042
     Dates: start: 20091109, end: 20100309
  2. CISPLATIN [Suspect]
     Indication: LUNG NEOPLASM MALIGNANT
     Dosage: 75 MG/M2, OTHER
     Route: 042
     Dates: start: 20091109, end: 20100309
  3. DEXAMETHASONE [Concomitant]
     Dosage: 4 MG, UNK
  4. FOLIC ACID [Concomitant]
     Dosage: 1 MG, UNK
  5. SIMVASTATIN [Concomitant]
     Dosage: 40 MG, UNK
  6. PROCHLORPERAZINE [Concomitant]
     Dosage: 10 MG, UNK
  7. SERTRALINE HCL [Concomitant]
     Dosage: 100 MG, UNK
  8. OXYBUTYNIN CHLORIDE [Concomitant]
     Dosage: 5 MG, UNK

REACTIONS (1)
  - ISCHAEMIC STROKE [None]
